FAERS Safety Report 12697739 (Version 1)
Quarter: 2016Q3

REPORT INFORMATION
  Report Type: Spontaneous
  Country: US (occurrence: US)
  Receive Date: 20160830
  Receipt Date: 20160830
  Transmission Date: 20161109
  Serious: Yes (Hospitalization, Other)
  Sender: FDA-Public Use
  Company Number: US-STRIDES ARCOLAB LIMITED-2016SP012659

PATIENT

DRUGS (6)
  1. STRIBILD [Interacting]
     Active Substance: COBICISTAT\ELVITEGRAVIR\EMTRICITABINE\TENOFOVIR DISOPROXIL FUMARATE
     Dosage: UNK
  2. STRIBILD [Interacting]
     Active Substance: COBICISTAT\ELVITEGRAVIR\EMTRICITABINE\TENOFOVIR DISOPROXIL FUMARATE
     Indication: HIV INFECTION
     Dosage: 1 DF, QD
  3. TACROLIMUS. [Interacting]
     Active Substance: TACROLIMUS
     Dosage: 0.5 MG, 2 TIMES A WEEK
  4. TACROLIMUS. [Suspect]
     Active Substance: TACROLIMUS
     Indication: IMMUNOSUPPRESSION
     Dosage: 3 MG, EVERY 12 HRS
  5. TACROLIMUS. [Interacting]
     Active Substance: TACROLIMUS
     Dosage: 3MG
  6. TACROLIMUS. [Interacting]
     Active Substance: TACROLIMUS
     Dosage: 3 MG, EVERY 12 HRS

REACTIONS (10)
  - Acute kidney injury [Unknown]
  - Toxicity to various agents [Unknown]
  - Nausea [Recovered/Resolved]
  - Visual impairment [Unknown]
  - Drug interaction [Unknown]
  - Renal impairment [Unknown]
  - Headache [Recovered/Resolved]
  - Diabetes mellitus inadequate control [Unknown]
  - Diarrhoea [Unknown]
  - Vomiting [Recovered/Resolved]
